FAERS Safety Report 9118894 (Version 1)
Quarter: 2013Q1

REPORT INFORMATION
  Report Type: Spontaneous
  Country: US (occurrence: US)
  Receive Date: 20130226
  Receipt Date: 20130226
  Transmission Date: 20140127
  Serious: No
  Sender: FDA-Public Use
  Company Number: US-BIOGENIDEC-2013BI016015

PATIENT
  Age: 42 Year
  Sex: Female

DRUGS (1)
  1. TYSABRI [Suspect]
     Indication: MULTIPLE SCLEROSIS
     Route: 042
     Dates: start: 20120416

REACTIONS (11)
  - Weight increased [Unknown]
  - Fluid retention [Not Recovered/Not Resolved]
  - Pain in extremity [Recovered/Resolved]
  - Feeling cold [Not Recovered/Not Resolved]
  - Skin warm [Not Recovered/Not Resolved]
  - Cardiac flutter [Recovered/Resolved]
  - Blepharospasm [Recovered/Resolved]
  - Deafness unilateral [Recovered/Resolved]
  - Palpitations [Recovered/Resolved]
  - Multiple sclerosis relapse [Recovered/Resolved]
  - Sluggishness [Recovered/Resolved]
